FAERS Safety Report 6570473-7 (Version None)
Quarter: 2010Q1

REPORT INFORMATION
  Report Type: 
  Country: None (occurrence: None)
  Receive Date: 20100204
  Receipt Date: 20090819
  Transmission Date: 20100710
  Serious: No
  Sender: FDA-Public Use
  Company Number: A0803090A

PATIENT
  Age: 59 Year
  Sex: Female

DRUGS (7)
  1. ARIXTRA [Suspect]
     Indication: DEEP VEIN THROMBOSIS
     Dosage: 7.5ML SINGLE DOSE
     Route: 058
     Dates: start: 20090817, end: 20090817
  2. CHEMOTHERAPY [Concomitant]
  3. LEUKINE [Concomitant]
  4. NEUMEGA [Concomitant]
  5. ARANESP [Concomitant]
  6. FLAGYL [Concomitant]
  7. CASPOFUNGIN [Concomitant]

REACTIONS (2)
  - HYPERSENSITIVITY [None]
  - URTICARIA [None]
